FAERS Safety Report 18478152 (Version 6)
Quarter: 2023Q2

REPORT INFORMATION
  Report Type: Spontaneous
  Country: DE (occurrence: DE)
  Receive Date: 20201108
  Receipt Date: 20230623
  Transmission Date: 20230721
  Serious: Yes (Other)
  Sender: FDA-Public Use
  Company Number: DE-002147023-NVSC2020DE118619

PATIENT
  Age: 63 Year
  Sex: Female
  Weight: 85 kg

DRUGS (17)
  1. VALSARTAN [Suspect]
     Active Substance: VALSARTAN
     Indication: Hypertension
     Dosage: 160 MILLIGRAM, ONCE A DAY
     Route: 065
     Dates: start: 2014, end: 2018
  2. VALSARTAN [Suspect]
     Active Substance: VALSARTAN
     Indication: Essential hypertension
  3. VALSARTAN [Suspect]
     Active Substance: VALSARTAN
     Indication: Hypertension
     Dosage: 160 MILLIGRAM, ONCE A DAY
     Route: 065
     Dates: start: 201207, end: 201312
  4. VALSARTAN [Suspect]
     Active Substance: VALSARTAN
     Indication: Essential hypertension
  5. VALSARTAN [Suspect]
     Active Substance: VALSARTAN
     Indication: Hypertension
     Dosage: 160 MILLIGRAM, ONCE A DAY
     Route: 065
     Dates: start: 20120423, end: 201207
  6. VALSARTAN [Suspect]
     Active Substance: VALSARTAN
     Indication: Essential hypertension
     Dosage: 160 MILLIGRAM, ONCE A DAY
     Route: 065
     Dates: start: 201312, end: 201511
  7. VALSARTAN [Suspect]
     Active Substance: VALSARTAN
     Dosage: 160 MILLIGRAM, ONCE A DAY
     Route: 065
     Dates: start: 20170727
  8. DOXYCYCLINE [Concomitant]
     Active Substance: DOXYCYCLINE
     Indication: Product used for unknown indication
     Dosage: UNK
     Route: 065
  9. METAMIZOLE [Concomitant]
     Active Substance: METAMIZOLE
     Indication: Product used for unknown indication
     Dosage: UNK (3?1 TABLET) (UPTO 4?1-2 INC CASE OF PAIN OR MORE THAN 39 DEGREE CELCIUS)
     Route: 065
  10. MOXIFLOXACIN [Concomitant]
     Active Substance: MOXIFLOXACIN
     Indication: Product used for unknown indication
     Dosage: 400 UNK, ONCE A DAY
     Route: 065
  11. Ortoton [Concomitant]
     Indication: Product used for unknown indication
     Dosage: UNK (AT NIGHT)
     Route: 065
  12. PREDNISOLONE [Concomitant]
     Active Substance: PREDNISOLONE
     Indication: Product used for unknown indication
     Dosage: UNK
     Route: 065
  13. Roxi [Concomitant]
     Indication: Product used for unknown indication
     Dosage: UNK, ONCE A DAY
     Route: 065
  14. NITROFURANTOIN [Concomitant]
     Active Substance: NITROFURANTOIN
     Indication: Product used for unknown indication
     Dosage: UNK
     Route: 065
  15. VALSARTAN [Concomitant]
     Active Substance: VALSARTAN
     Indication: Product used for unknown indication
     Dosage: UNK
     Route: 065
  16. CIPROFLOXACIN\CIPROFLOXACIN HYDROCHLORIDE [Concomitant]
     Active Substance: CIPROFLOXACIN\CIPROFLOXACIN HYDROCHLORIDE
     Indication: Product used for unknown indication
     Dosage: UNK (1-0-1)
     Route: 065
  17. TRIAMCINOLONE [Concomitant]
     Active Substance: TRIAMCINOLONE
     Indication: Product used for unknown indication
     Dosage: UNK 40 (1?1 ML)
     Route: 065

REACTIONS (17)
  - Hypothyroidism [Unknown]
  - Fear of disease [Unknown]
  - Spinal pain [Unknown]
  - Diarrhoea [Not Recovered/Not Resolved]
  - Dizziness [Unknown]
  - Cardiovascular disorder [Unknown]
  - Anxiety [Unknown]
  - Palpitations [Unknown]
  - Emotional distress [Unknown]
  - Hyperhidrosis [Not Recovered/Not Resolved]
  - Abdominal discomfort [Unknown]
  - Nausea [Unknown]
  - Tremor [Unknown]
  - Sleep disorder [Not Recovered/Not Resolved]
  - Restlessness [Unknown]
  - Quality of life decreased [Unknown]
  - Gastritis [Unknown]

NARRATIVE: CASE EVENT DATE: 20140101
